FAERS Safety Report 10670522 (Version 5)
Quarter: 2015Q2

REPORT INFORMATION
  Report Type: Spontaneous
  Country: US (occurrence: US)
  Receive Date: 20141223
  Receipt Date: 20150415
  Transmission Date: 20150821
  Serious: Yes (Death, Hospitalization, Other)
  Sender: FDA-Public Use
  Company Number: US-009507513-1412USA010302

PATIENT
  Sex: Male
  Weight: 92.63 kg

DRUGS (2)
  1. BYETTA [Suspect]
     Active Substance: EXENATIDE
     Indication: TYPE 2 DIABETES MELLITUS
     Dosage: 5 MICROGRAM, BID
     Dates: start: 20111111, end: 20120129
  2. JANUMET [Suspect]
     Active Substance: METFORMIN HYDROCHLORIDE\SITAGLIPTIN PHOSPHATE
     Indication: TYPE 2 DIABETES MELLITUS
     Dosage: 50-1000 MG, BID
     Route: 048
     Dates: start: 20090609, end: 20120127

REACTIONS (24)
  - Renal cyst [Unknown]
  - Diverticulum intestinal [Unknown]
  - Dyslipidaemia [Unknown]
  - Metastases to liver [Unknown]
  - Blood cholesterol increased [Not Recovered/Not Resolved]
  - Eructation [Unknown]
  - Pancreatic carcinoma metastatic [Fatal]
  - Pleural effusion [Unknown]
  - Pollakiuria [Unknown]
  - Metastases to lung [Unknown]
  - Early satiety [Unknown]
  - Pneumonia [Unknown]
  - Anxiety [Unknown]
  - Tonsillectomy [Unknown]
  - Sinus disorder [Unknown]
  - Dyspnoea [Unknown]
  - Wheezing [Unknown]
  - Metastases to lymph nodes [Unknown]
  - Back pain [Unknown]
  - Respiratory failure [Fatal]
  - Gallbladder disorder [Unknown]
  - Umbilical hernia [Unknown]
  - Inguinal hernia [Unknown]
  - Cough [Unknown]

NARRATIVE: CASE EVENT DATE: 20110509
